FAERS Safety Report 10038109 (Version 1)
Quarter: 2014Q1

REPORT INFORMATION
  Report Type: Spontaneous
  Country: US (occurrence: None)
  Receive Date: 20140306
  Receipt Date: 20140306
  Transmission Date: 20141002
  Serious: Yes (Other)
  Sender: FDA-Public Use
  Company Number: 163-21880-13082905

PATIENT
  Age: 79 Year
  Sex: Female
  Weight: 64.86 kg

DRUGS (11)
  1. REVLIMID (LENALIDOMIDE) (15 MILLIGRAM, CAPSULES) [Suspect]
     Indication: PLASMA CELL MYELOMA
     Route: 048
     Dates: start: 20090309
  2. LASIX (FUROSEMIDE) (TABLETS) [Concomitant]
  3. COUMADIN (WARFARIN SODIUM) (TABLETS) [Concomitant]
  4. SYNTHROID (LEVOTHYROXINE SODIUM) (TABLETS) [Concomitant]
  5. CLONIDINE HCL (CLONIDINE HYDROCHLORIDE) (UNKNOWN) [Concomitant]
  6. PREVACID (LANSOPRAZOLE) (TABLETS) [Concomitant]
  7. ASPIRINE (ACETYLSALICYLIC ACID (TABLETS) [Concomitant]
  8. VERAPAMIL ER PM (VERAPAMIL) (UNKNOWN) [Concomitant]
  9. VITAMIN B12 (CYANOCOBALAMIN) (UNKNOWN) [Concomitant]
  10. VITAMIN D (ERGOCALCIFEROL) (CAPSULES) [Concomitant]
  11. FISH OIL (FISH OIL) (CAPSULES) [Concomitant]

REACTIONS (3)
  - Fall [None]
  - Femur fracture [None]
  - Neutropenia [None]
